FAERS Safety Report 10055028 (Version 1)
Quarter: 2014Q2

REPORT INFORMATION
  Report Type: Spontaneous
  Country: US (occurrence: US)
  Receive Date: 20140402
  Receipt Date: 20140402
  Transmission Date: 20141212
  Serious: No
  Sender: FDA-Public Use
  Company Number: US-SA-2014SA028460

PATIENT
  Age: 51 Year
  Sex: Female

DRUGS (3)
  1. AUBAGIO [Suspect]
     Indication: MULTIPLE SCLEROSIS
     Route: 048
     Dates: start: 20130828
  2. GABAPENTIN [Concomitant]
  3. VITAMIN D [Concomitant]

REACTIONS (8)
  - Vision blurred [Unknown]
  - Malaise [Unknown]
  - Fatigue [Unknown]
  - Abdominal distension [Unknown]
  - Abdominal tenderness [Unknown]
  - Urine abnormality [Unknown]
  - Dysuria [Unknown]
  - Influenza [Unknown]
